FAERS Safety Report 8070850-1 (Version None)
Quarter: 2012Q1

REPORT INFORMATION
  Report Type: 
  Country: None (occurrence: None)
  Receive Date: 20120125
  Receipt Date: 20120116
  Transmission Date: 20120608
  Serious: Yes (Other)
  Sender: FDA-Public Use
  Company Number: JP-GLAXOSMITHKLINE-B0776521A

PATIENT
  Age: 28 Year
  Sex: Female

DRUGS (3)
  1. RIZATRIPTAN BENZOATE [Concomitant]
     Dosage: 26IUAX IN THE MORNING
     Route: 048
     Dates: start: 20050101
  2. SUMATRIPTAN SUCCINATE [Suspect]
     Dosage: 20IUAX IN THE MORNING
     Route: 045
  3. INDOMETHACIN [Concomitant]
     Dosage: 20IUAX IN THE MORNING
     Route: 054

REACTIONS (3)
  - DRUG INEFFECTIVE [None]
  - HEADACHE [None]
  - DRUG ABUSE [None]
